FAERS Safety Report 5262408-4 (Version None)
Quarter: 2007Q1

REPORT INFORMATION
  Report Type: 
  Country: None (occurrence: None)
  Receive Date: 20070309
  Receipt Date: 20070309
  Transmission Date: 20070707
  Serious: Yes (Hospitalization)
  Sender: FDA-Public Use
  Company Number: None

PATIENT
  Age: 61 Year
  Sex: Female
  Weight: 64.4108 kg

DRUGS (1)
  1. MACROBID [Suspect]
     Indication: URINARY TRACT INFECTION
     Dosage: 1 TWICE A DAY PO
     Route: 048
     Dates: start: 20070226, end: 20070303

REACTIONS (9)
  - CEREBROVASCULAR ACCIDENT [None]
  - CHEST PAIN [None]
  - COUGH [None]
  - DYSPNOEA [None]
  - MIDDLE INSOMNIA [None]
  - MIGRAINE [None]
  - STRESS [None]
  - THROMBOSIS [None]
  - VISION BLURRED [None]
